FAERS Safety Report 16898416 (Version 2)
Quarter: 2019Q4

REPORT INFORMATION
  Report Type: Spontaneous
  Country: US (occurrence: US)
  Receive Date: 20191009
  Receipt Date: 20191121
  Transmission Date: 20200122
  Serious: Yes (Death)
  Sender: FDA-Public Use
  Company Number: US-MERZ PHARMACEUTICALS GMBH-19-04131

PATIENT
  Sex: Male

DRUGS (2)
  1. XEOMIN [Suspect]
     Active Substance: INCOBOTULINUMTOXINA
     Indication: HEMIPLEGIA
     Route: 030
  2. XEOMIN [Suspect]
     Active Substance: INCOBOTULINUMTOXINA
     Route: 030
     Dates: start: 2018

REACTIONS (1)
  - Death [Fatal]
